FAERS Safety Report 6975934-4 (Version None)
Quarter: 2010Q3

REPORT INFORMATION
  Report Type: 
  Country: None (occurrence: None)
  Receive Date: 20100910
  Receipt Date: 20100902
  Transmission Date: 20110219
  Serious: Yes (Death)
  Sender: FDA-Public Use
  Company Number: US-CELGENEUS-163-21880-10082162

PATIENT
  Sex: Male

DRUGS (4)
  1. REVLIMID [Suspect]
     Indication: MULTIPLE MYELOMA
     Dosage: 15-10MG
     Route: 048
     Dates: start: 20070101, end: 20070101
  2. REVLIMID [Suspect]
     Route: 048
     Dates: start: 20070601, end: 20090101
  3. REVLIMID [Suspect]
     Route: 048
     Dates: start: 20090601, end: 20100101
  4. REVLIMID [Suspect]
     Route: 048
     Dates: start: 20100401, end: 20100101

REACTIONS (2)
  - MULTIPLE MYELOMA [None]
  - NERVOUS SYSTEM DISORDER [None]
